FAERS Safety Report 4745332-2 (Version None)
Quarter: 2005Q3

REPORT INFORMATION
  Report Type: 
  Country: None (occurrence: None)
  Receive Date: 20050812
  Receipt Date: 20050118
  Transmission Date: 20060218
  Serious: Yes (Other)
  Sender: FDA-Public Use
  Company Number: 2005018180

PATIENT
  Age: 58 Year
  Sex: Female
  Weight: 136.0791 kg

DRUGS (8)
  1. DETROL LA [Suspect]
     Indication: ILL-DEFINED DISORDER
     Dosage: 4 MG (4 MG, 1 IN 1 D)
     Dates: start: 20050118
  2. LEXAPRO [Concomitant]
  3. NEXIUM [Concomitant]
  4. GLUCOVANCE [Concomitant]
  5. VALSARTAN [Concomitant]
  6. LABETALOL HCL [Concomitant]
  7. MIACALCIN [Concomitant]
  8. XANAX [Concomitant]

REACTIONS (2)
  - CONDITION AGGRAVATED [None]
  - HYPERTENSION [None]
